FAERS Safety Report 8613681 (Version 4)
Quarter: 2013Q3

REPORT INFORMATION
  Report Type: Spontaneous
  Country: US (occurrence: US)
  Receive Date: 20120614
  Receipt Date: 20130926
  Transmission Date: 20140515
  Serious: Yes (Hospitalization, Other)
  Sender: FDA-Public Use
  Company Number: US-US-EMD SERONO, INC.-7138579

PATIENT
  Sex: Male

DRUGS (1)
  1. REBIF [Suspect]
     Indication: MULTIPLE SCLEROSIS
     Route: 058
     Dates: start: 20071206

REACTIONS (6)
  - Haemorrhoidal haemorrhage [Recovered/Resolved]
  - Choking [Not Recovered/Not Resolved]
  - Pneumonia aspiration [Unknown]
  - Staphylococcal infection [Unknown]
  - Thyroid disorder [Not Recovered/Not Resolved]
  - Speech disorder [Unknown]
